FAERS Safety Report 24971907 (Version 6)
Quarter: 2025Q4

REPORT INFORMATION
  Report Type: Report from Study
  Country: CA (occurrence: CA)
  Receive Date: 20250214
  Receipt Date: 20251001
  Transmission Date: 20260118
  Serious: Yes (Hospitalization, Other)
  Sender: JOHNSON AND JOHNSON
  Company Number: CA-JNJFOC-20241031428

PATIENT
  Age: 32 Year
  Sex: Female

DRUGS (8)
  1. REMICADE [Suspect]
     Active Substance: INFLIXIMAB
     Indication: Crohn^s disease
     Dosage: LOT EXPIRATION DATE: MA-2027
     Route: 041
     Dates: start: 20140506
  2. REMICADE [Suspect]
     Active Substance: INFLIXIMAB
     Route: 041
     Dates: start: 20140623
  3. REMICADE [Suspect]
     Active Substance: INFLIXIMAB
     Dosage: LOT EXPIRATION DATE: MA-2027
     Route: 041
     Dates: start: 20140506
  4. REMICADE [Suspect]
     Active Substance: INFLIXIMAB
     Route: 041
  5. TINZAPARIN [Concomitant]
     Active Substance: TINZAPARIN
     Indication: Product used for unknown indication
  6. ZOLOFT [Concomitant]
     Active Substance: SERTRALINE HYDROCHLORIDE
     Indication: Product used for unknown indication
  7. COLESEVELAM HYDROCHLORIDE [Concomitant]
     Active Substance: COLESEVELAM HYDROCHLORIDE
     Indication: Product used for unknown indication
  8. ZOFRAN [Concomitant]
     Active Substance: ONDANSETRON HYDROCHLORIDE
     Indication: Product used for unknown indication

REACTIONS (5)
  - Caesarean section [Recovered/Resolved]
  - Atypical pneumonia [Recovered/Resolved]
  - Rib fracture [Recovered/Resolved]
  - Exposure during pregnancy [Recovered/Resolved]
  - Staphylococcal infection [Recovered/Resolved]

NARRATIVE: CASE EVENT DATE: 20240101
